FAERS Safety Report 5626776-3 (Version None)
Quarter: 2008Q1

REPORT INFORMATION
  Report Type: 
  Country: None (occurrence: None)
  Receive Date: 20080212
  Receipt Date: 20080204
  Transmission Date: 20080703
  Serious: Yes (Other)
  Sender: FDA-Public Use
  Company Number: CHPA2008US02218

PATIENT
  Age: 70 Year
  Sex: Female

DRUGS (1)
  1. GAS-X EXTRA STRENGTH SOFTGELS (NCH)(SIMETHICONE) SOFT GELATIN CAPSULE [Suspect]
     Indication: FLATULENCE
     Dosage: 250 MG, BID, ORAL
     Route: 048
     Dates: start: 20080204

REACTIONS (3)
  - ABDOMINAL PAIN UPPER [None]
  - HAEMATOCHEZIA [None]
  - MUCOUS STOOLS [None]
